FAERS Safety Report 10169237 (Version 1)
Quarter: 2014Q2

REPORT INFORMATION
  Report Type: Spontaneous
  Country: ES (occurrence: None)
  Receive Date: 20140509
  Receipt Date: 20140509
  Transmission Date: 20141212
  Serious: Yes (Hospitalization)
  Sender: FDA-Public Use
  Company Number: ES-ALKEM-000578

PATIENT
  Age: 23 Year
  Sex: Female

DRUGS (1)
  1. MYCOPHENOLATE MOFETIL [Suspect]
     Indication: LUPUS NEPHRITIS
     Dosage: 24 HOURS

REACTIONS (10)
  - Anaemia [None]
  - Thrombocytopenia [None]
  - Lupus nephritis [None]
  - Condition aggravated [None]
  - Haemodialysis [None]
  - Generalised oedema [None]
  - Therapeutic response decreased [None]
  - Drug level decreased [None]
  - Treatment noncompliance [None]
  - Systemic lupus erythematosus [None]
